FAERS Safety Report 9614305 (Version 2)
Quarter: 2013Q4

REPORT INFORMATION
  Report Type: Spontaneous
  Country: NL (occurrence: NL)
  Receive Date: 20131011
  Receipt Date: 20131028
  Transmission Date: 20140711
  Serious: Yes (Death, Disabling)
  Sender: FDA-Public Use
  Company Number: NL-TEVA-436573ISR

PATIENT
  Age: 88 Year
  Sex: Female

DRUGS (8)
  1. METOCLOPRAMIDE [Suspect]
     Indication: NAUSEA
     Dosage: 30 MILLIGRAM DAILY; 10MG 3DD
     Route: 065
  2. PANTOPRAZOLE [Concomitant]
     Route: 065
  3. ASPIRIN [Concomitant]
     Route: 065
  4. ISOSORBIDE MONONITRATE [Concomitant]
     Route: 065
  5. TEMAZEPAM [Concomitant]
     Route: 065
  6. COLECALCIFEROL [Concomitant]
     Route: 065
  7. CALCIUM CARBONATE [Concomitant]
     Route: 065
  8. LEVOTHYROXINE SODIUM [Concomitant]
     Route: 065

REACTIONS (3)
  - Pneumonia aspiration [Fatal]
  - Parkinsonism [Unknown]
  - Incorrect drug administration duration [Unknown]
